FAERS Safety Report 20348658 (Version 1)
Quarter: 2022Q1

REPORT INFORMATION
  Report Type: Spontaneous
  Country: US (occurrence: None)
  Receive Date: 20220119
  Receipt Date: 20220119
  Transmission Date: 20220424
  Serious: Yes (Hospitalization)
  Sender: FDA-Public Use
  Company Number: US-Sloan Pharma SARL-MDD202102-000201

PATIENT
  Sex: Female

DRUGS (2)
  1. MYOBLOC [Suspect]
     Active Substance: RIMABOTULINUMTOXINB
     Indication: Dystonia
     Dosage: NOT PROVIDED
  2. MYOBLOC [Suspect]
     Active Substance: RIMABOTULINUMTOXINB
     Indication: Headache

REACTIONS (5)
  - Nausea [Unknown]
  - Headache [Unknown]
  - Dry mouth [Unknown]
  - Dysphagia [Unknown]
  - Product use in unapproved indication [Unknown]

NARRATIVE: CASE EVENT DATE: 20210101
